FAERS Safety Report 15993316 (Version 1)
Quarter: 2019Q1

REPORT INFORMATION
  Report Type: Report from Study
  Country: DE (occurrence: DE)
  Receive Date: 20190222
  Receipt Date: 20190222
  Transmission Date: 20190418
  Serious: Yes (Life-Threatening, Hospitalization)
  Sender: FDA-Public Use
  Company Number: PHHO2013DE020381

PATIENT
  Age: 54 Year
  Sex: Female

DRUGS (5)
  1. TYKERB [Suspect]
     Active Substance: LAPATINIB DITOSYLATE
     Indication: BREAST CANCER
     Dosage: 1000 MG, QD
     Route: 048
     Dates: start: 20100122, end: 20110121
  2. TRASTUZUMAB. [Suspect]
     Active Substance: TRASTUZUMAB
     Indication: BREAST CANCER
     Dosage: QW
     Route: 042
     Dates: start: 20100122, end: 20110113
  3. LETROZOLE. [Concomitant]
     Active Substance: LETROZOLE
     Indication: BREAST CANCER
     Dosage: 2.5 MG, QD
     Route: 048
     Dates: start: 20100415
  4. DOCETAXEL. [Suspect]
     Active Substance: DOCETAXEL
     Indication: BREAST CANCER
     Dosage: QW3
     Route: 042
     Dates: start: 20100121, end: 20100325
  5. RAMIPRIL. [Concomitant]
     Active Substance: RAMIPRIL
     Indication: MITRAL VALVE INCOMPETENCE
     Dosage: 2.5 MG, QD
     Route: 048
     Dates: start: 20100114

REACTIONS (2)
  - Myelodysplastic syndrome [Recovered/Resolved with Sequelae]
  - Acute myeloid leukaemia [Recovered/Resolved with Sequelae]

NARRATIVE: CASE EVENT DATE: 20120710
